FAERS Safety Report 12699848 (Version 2)
Quarter: 2016Q4

REPORT INFORMATION
  Report Type: Report from Study
  Country: None (occurrence: US)
  Receive Date: 20160830
  Receipt Date: 20161108
  Transmission Date: 20170207
  Serious: Yes (Hospitalization)
  Sender: FDA-Public Use
  Company Number: US-ABBVIE-16K-163-1709936-00

PATIENT
  Age: 61 Year
  Sex: Female
  Weight: 74 kg

DRUGS (14)
  1. HUMIRA [Suspect]
     Active Substance: ADALIMUMAB
     Indication: CROHN^S DISEASE
     Route: 058
     Dates: start: 201504, end: 2016
  2. HUMIRA [Suspect]
     Active Substance: ADALIMUMAB
     Route: 058
     Dates: start: 2016, end: 201609
  3. HUMIRA [Suspect]
     Active Substance: ADALIMUMAB
     Route: 058
     Dates: start: 2016
  4. DILTIAZEM. [Concomitant]
     Active Substance: DILTIAZEM
     Indication: SUPRAVENTRICULAR TACHYCARDIA
  5. FAMOTIDINE. [Concomitant]
     Active Substance: FAMOTIDINE
     Indication: GASTROOESOPHAGEAL REFLUX DISEASE
  6. MIRTAZAPINE. [Concomitant]
     Active Substance: MIRTAZAPINE
     Indication: DEPRESSION
  7. AMITRIPTYLINE [Concomitant]
     Active Substance: AMITRIPTYLINE
     Indication: GASTROINTESTINAL MOTILITY DISORDER
  8. FLONASE [Concomitant]
     Active Substance: FLUTICASONE PROPIONATE
     Indication: SEASONAL ALLERGY
  9. METOPROLOL. [Concomitant]
     Active Substance: METOPROLOL
     Indication: SUPRAVENTRICULAR TACHYCARDIA
  10. AZATHIOPRINE. [Concomitant]
     Active Substance: AZATHIOPRINE
     Indication: CROHN^S DISEASE
  11. LOMOTIL [Concomitant]
     Active Substance: ATROPINE SULFATE\DIPHENOXYLATE HYDROCHLORIDE
     Indication: GASTROINTESTINAL MOTILITY DISORDER
  12. LEVOTHYROXINE. [Concomitant]
     Active Substance: LEVOTHYROXINE
     Indication: HYPOTHYROIDISM
  13. HUMIRA [Suspect]
     Active Substance: ADALIMUMAB
     Route: 058
     Dates: start: 20160727, end: 201608
  14. SPIRONOLACTONE. [Concomitant]
     Active Substance: SPIRONOLACTONE
     Indication: FLUID RETENTION

REACTIONS (10)
  - Intestinal obstruction [Recovered/Resolved]
  - Femur fracture [Recovering/Resolving]
  - Full blood count abnormal [Recovering/Resolving]
  - Functional gastrointestinal disorder [Recovering/Resolving]
  - Hypotension [Recovered/Resolved]
  - Asthenia [Recovering/Resolving]
  - Sinusitis [Recovered/Resolved]
  - Weight decreased [Recovering/Resolving]
  - Malabsorption [Recovering/Resolving]
  - Fall [Recovering/Resolving]

NARRATIVE: CASE EVENT DATE: 2016
